FAERS Safety Report 10189552 (Version 7)
Quarter: 2016Q2

REPORT INFORMATION
  Report Type: Spontaneous
  Country: US (occurrence: US)
  Receive Date: 20140522
  Receipt Date: 20160405
  Transmission Date: 20160815
  Serious: No
  Sender: FDA-Public Use
  Company Number: US-009507513-1405USA009813

PATIENT
  Sex: Male
  Weight: 72.56 kg

DRUGS (3)
  1. FINASTERIDE. [Suspect]
     Active Substance: FINASTERIDE
     Indication: ALOPECIA
     Dosage: 5 MG, UNKNOWN
     Route: 048
     Dates: start: 20080610, end: 20110518
  2. PROSCAR [Suspect]
     Active Substance: FINASTERIDE
     Indication: ANDROGENETIC ALOPECIA
  3. PROSCAR [Suspect]
     Active Substance: FINASTERIDE
     Indication: ALOPECIA
     Dosage: 5 MG, QD
     Route: 048
     Dates: start: 20031125, end: 200806

REACTIONS (12)
  - Hypogonadism [Unknown]
  - Fatigue [Unknown]
  - Blood cholesterol increased [Unknown]
  - Haematuria [Unknown]
  - Back pain [Unknown]
  - Organic erectile dysfunction [Not Recovered/Not Resolved]
  - Libido decreased [Unknown]
  - Hypertension [Not Recovered/Not Resolved]
  - Drug administration error [Unknown]
  - Neck pain [Unknown]
  - Genital disorder male [Unknown]
  - Sexual dysfunction [Not Recovered/Not Resolved]

NARRATIVE: CASE EVENT DATE: 20040129
